FAERS Safety Report 18474945 (Version 2)
Quarter: 2020Q4

REPORT INFORMATION
  Report Type: Spontaneous
  Country: US (occurrence: US)
  Receive Date: 20201106
  Receipt Date: 20201112
  Transmission Date: 20210114
  Serious: No
  Sender: FDA-Public Use
  Company Number: US-PFIZER INC-2020429866

PATIENT
  Age: 5 Year
  Sex: Female
  Weight: 24.95 kg

DRUGS (3)
  1. DETROL [Suspect]
     Active Substance: TOLTERODINE TARTRATE
     Dosage: UNK (LOWER DOSE)
  2. DETROL [Suspect]
     Active Substance: TOLTERODINE TARTRATE
     Dosage: UNK
     Dates: start: 202009
  3. DETROL LA [Suspect]
     Active Substance: TOLTERODINE TARTRATE
     Dosage: UNK
     Dates: start: 2020

REACTIONS (4)
  - Product use issue [Unknown]
  - Urinary incontinence [Unknown]
  - Off label use [Unknown]
  - Bladder discomfort [Unknown]
